FAERS Safety Report 21034790 (Version 1)
Quarter: 2022Q3

REPORT INFORMATION
  Report Type: Spontaneous
  Country: FR (occurrence: FR)
  Receive Date: 20220701
  Receipt Date: 20220701
  Transmission Date: 20221026
  Serious: Yes (Hospitalization)
  Sender: FDA-Public Use
  Company Number: None

PATIENT
  Age: 59 Year
  Sex: Male

DRUGS (2)
  1. KETOPROFEN [Suspect]
     Active Substance: KETOPROFEN
     Indication: Haematuria
     Dosage: 2 TABS/D , DURATION : 29 DAYS
     Route: 048
     Dates: start: 20210818, end: 20210916
  2. OFLOXACIN [Suspect]
     Active Substance: OFLOXACIN
     Indication: Haematuria
     Dosage: DURATION : 10 DAYS
     Route: 048
     Dates: start: 20210906, end: 20210916

REACTIONS (1)
  - Acute kidney injury [Recovered/Resolved with Sequelae]
